FAERS Safety Report 9905076 (Version 2)
Quarter: 2014Q1

REPORT INFORMATION
  Report Type: Spontaneous
  Country: US (occurrence: US)
  Receive Date: 20140218
  Receipt Date: 20140218
  Transmission Date: 20141002
  Serious: No
  Sender: FDA-Public Use
  Company Number: US-GILEAD-2012-0050767

PATIENT
  Sex: Male

DRUGS (2)
  1. LETAIRIS [Suspect]
     Indication: PULMONARY HYPERTENSION
     Dosage: 10 MG, UNK
     Route: 048
     Dates: start: 20110313
  2. LETAIRIS [Suspect]
     Indication: DRUG ABUSE

REACTIONS (3)
  - Chest pain [Unknown]
  - Abdominal pain [Unknown]
  - Dyspnoea [Unknown]
